FAERS Safety Report 5207499-1 (Version None)
Quarter: 2007Q1

REPORT INFORMATION
  Report Type: 
  Country: None (occurrence: None)
  Receive Date: 20070112
  Receipt Date: 20070105
  Transmission Date: 20070707
  Serious: Yes (Other)
  Sender: FDA-Public Use
  Company Number: FR-ROXANE LABORATORIES, INC-2007-DE-00091GD

PATIENT

DRUGS (10)
  1. MORPHINE [Suspect]
     Indication: PROCEDURAL PAIN
     Dosage: IV BOLUSES OF 2 MG, TITRATED EVERY 5 MIN UNTIL VERBAL RATING PAIN SCALE {2
     Route: 042
  2. MORPHINE [Suspect]
     Dosage: 1 MG BOLUS WITH 7 MIN LOCKOUT TIME FOR 3 POSTOPERATIVE DAYS
     Route: 042
  3. HYDROXYZINE [Concomitant]
     Indication: PREMEDICATION
     Route: 048
  4. THIOPENTAL SODIUM [Concomitant]
     Indication: INDUCTION OF ANAESTHESIA
     Dosage: 3 - 4 MG/KG
     Route: 042
  5. SUFENTANIL CITRATE [Concomitant]
     Indication: INDUCTION AND MAINTENANCE OF ANAESTHESIA
     Dosage: 0,2 - 0,3 MCG/KG
     Route: 042
  6. SUFENTANIL CITRATE [Concomitant]
     Dosage: BOLUSES OF 0,1 - 0,2 MCG/KG TO MAINTAIN HEART RATE AND SYSTOLIC BLOOD PRESSURE WITHIN A 20% RANGE OF
  7. ATRACURIUM BESYLATE [Concomitant]
     Indication: INTUBATION
  8. ATRACURIUM BESYLATE [Concomitant]
     Indication: MAINTENANCE OF ANAESTHESIA
     Dosage: CONTINUOUS ADMINISTRATION OF 0,5 MG/KG/H
  9. NITRIC OXIDE [Concomitant]
     Indication: MAINTENANCE OF ANAESTHESIA
  10. PROPACETAMOL [Concomitant]
     Indication: PROCEDURAL PAIN
     Dosage: 2 MG EVERY 6 H UNTIL RECOVERY OF INTESTINAL FUNCTION
     Route: 042

REACTIONS (1)
  - ABDOMINAL SEPSIS [None]
